FAERS Safety Report 6106122-1 (Version None)
Quarter: 2009Q1

REPORT INFORMATION
  Report Type: 
  Country: None (occurrence: None)
  Receive Date: 20090306
  Receipt Date: 20090219
  Transmission Date: 20090719
  Serious: Yes (Other)
  Sender: FDA-Public Use
  Company Number: PHEH2009US01876

PATIENT
  Age: 74 Year
  Sex: Female

DRUGS (13)
  1. RECLAST [Suspect]
     Dosage: UNK
     Dates: start: 20090106
  2. LOTENSIN [Concomitant]
     Dosage: 10 MG, UNK
  3. PLAQUENIL [Concomitant]
     Dosage: 200 MG, UNK
  4. WELLBUTRIN XL [Concomitant]
     Dosage: 150 MG, UNK
  5. LOPRESSOR [Concomitant]
     Dosage: 100 MG, UNK
  6. METFORMIN [Concomitant]
     Dosage: 500 MG, UNK
  7. LOVASTATIN [Concomitant]
     Dosage: 40 MG, UNK
  8. VALIUM [Concomitant]
     Dosage: 5 MG, UNK
  9. PREDNISONE [Concomitant]
     Dosage: 5 MG, UNK
  10. CALCIUM WITH VITAMIN D [Concomitant]
  11. GLUCOSAMINE [Concomitant]
  12. CHONDROITIN SULFATE [Concomitant]
  13. REMERON [Concomitant]
     Dosage: 30 MG, UNK

REACTIONS (9)
  - DENTAL CLEANING [None]
  - GINGIVAL DISORDER [None]
  - JAW DISORDER [None]
  - LIP DISORDER [None]
  - ORAL DISCOMFORT [None]
  - PAIN IN EXTREMITY [None]
  - PAIN IN JAW [None]
  - PARAESTHESIA ORAL [None]
  - THROAT TIGHTNESS [None]
